FAERS Safety Report 5024336-9 (Version None)
Quarter: 2006Q2

REPORT INFORMATION
  Report Type: 
  Country: None (occurrence: None)
  Receive Date: 20060426
  Receipt Date: 20060308
  Transmission Date: 20061013
  Serious: Yes (Other)
  Sender: FDA-Public Use
  Company Number: 2006034307

PATIENT
  Age: 74 Year
  Sex: Female

DRUGS (2)
  1. LYRICA [Suspect]
     Indication: ARTHRITIS
     Dosage: (2 IN 1 D)
     Dates: start: 20060101
  2. ANALGESICS (ANALGESICS) [Concomitant]

REACTIONS (1)
  - CARDIAC FLUTTER [None]
